FAERS Safety Report 10884797 (Version 1)
Quarter: 2015Q1

REPORT INFORMATION
  Report Type: Spontaneous
  Country: US (occurrence: None)
  Receive Date: 20150227
  Receipt Date: 20150227
  Transmission Date: 20150721
  Serious: No
  Sender: FDA-Public Use
  Company Number: None

PATIENT
  Age: 62 Year
  Sex: Female

DRUGS (1)
  1. CAPECITABINE 500MG TEVA PHARMACEUTICALS [Suspect]
     Active Substance: CAPECITABINE
     Indication: RECTAL CANCER
     Dosage: 1500MG EVERY AM 1000MG EVERY PM 7 DAYS ON, 7 DAYS OFF PO
     Route: 048
     Dates: start: 20140731, end: 20150226

REACTIONS (1)
  - Disease progression [None]

NARRATIVE: CASE EVENT DATE: 20150226
